FAERS Safety Report 5684379-9 (Version None)
Quarter: 2008Q1

REPORT INFORMATION
  Report Type: 
  Country: None (occurrence: None)
  Receive Date: 20080328
  Receipt Date: 20080326
  Transmission Date: 20080703
  Serious: Yes (Other)
  Sender: FDA-Public Use
  Company Number: D0056060A

PATIENT
  Age: 7 Year
  Sex: Male

DRUGS (3)
  1. VIANI [Suspect]
     Indication: ASTHMA
     Dosage: 150MCG TWICE PER DAY
     Route: 055
     Dates: start: 20030101, end: 20080101
  2. CETIRIZIN [Concomitant]
     Route: 065
  3. SINGULAIR [Concomitant]
     Route: 065
     Dates: start: 20070101

REACTIONS (7)
  - CONVULSION [None]
  - HEADACHE [None]
  - INFECTION [None]
  - LARYNX IRRITATION [None]
  - SWELLING FACE [None]
  - TIC [None]
  - WEIGHT INCREASED [None]
